FAERS Safety Report 5245629-6 (Version None)
Quarter: 2007Q1

REPORT INFORMATION
  Report Type: 
  Country: None (occurrence: None)
  Receive Date: 20070216
  Receipt Date: 20070202
  Transmission Date: 20070707
  Serious: Yes (Hospitalization)
  Sender: FDA-Public Use
  Company Number: US-1160519

PATIENT
  Sex: Male

DRUGS (1)
  1. SYSTANE FREE LIQUID GEL [Suspect]
     Route: 047

REACTIONS (2)
  - INFECTION [None]
  - PYREXIA [None]
